FAERS Safety Report 5340672-0 (Version None)
Quarter: 2007Q2

REPORT INFORMATION
  Report Type: 
  Country: None (occurrence: None)
  Receive Date: 20070405
  Receipt Date: 20061214
  Transmission Date: 20071010
  Serious: No
  Sender: FDA-Public Use
  Company Number: US200612002531

PATIENT
  Sex: Male

DRUGS (1)
  1. CYMBALTA [Suspect]
     Indication: ANXIETY
     Dosage: 20 MG, ORAL
     Route: 048
     Dates: start: 20061201

REACTIONS (2)
  - FEELING ABNORMAL [None]
  - STOMACH DISCOMFORT [None]
